FAERS Safety Report 4950748-5 (Version None)
Quarter: 2006Q1

REPORT INFORMATION
  Report Type: 
  Country: None (occurrence: None)
  Receive Date: 20060322
  Receipt Date: 20060310
  Transmission Date: 20060701
  Serious: Yes (Hospitalization)
  Sender: FDA-Public Use
  Company Number: JP-ROCHE-440136

PATIENT
  Age: 36 Year
  Sex: Male

DRUGS (1)
  1. ROCEPHIN [Suspect]
     Indication: ACUTE TONSILLITIS
     Route: 048
     Dates: start: 20060309, end: 20060309

REACTIONS (1)
  - SHOCK [None]
